FAERS Safety Report 20729658 (Version 2)
Quarter: 2022Q2

REPORT INFORMATION
  Report Type: Spontaneous
  Country: US (occurrence: US)
  Receive Date: 20220420
  Receipt Date: 20220421
  Transmission Date: 20220721
  Serious: No
  Sender: FDA-Public Use
  Company Number: US-JNJFOC-20220426278

PATIENT
  Age: 4 Decade
  Sex: Female
  Weight: 82.628 kg

DRUGS (12)
  1. HALDOL DECANOATE [Suspect]
     Active Substance: HALOPERIDOL DECANOATE
     Indication: Bipolar disorder
     Route: 030
     Dates: start: 20220202, end: 20220202
  2. HALDOL DECANOATE [Suspect]
     Active Substance: HALOPERIDOL DECANOATE
     Indication: Schizoaffective disorder
  3. HALDOL DECANOATE [Suspect]
     Active Substance: HALOPERIDOL DECANOATE
     Indication: Anxiety disorder
  4. HALDOL DECANOATE [Suspect]
     Active Substance: HALOPERIDOL DECANOATE
     Indication: Obsessive-compulsive disorder
  5. HALDOL [Suspect]
     Active Substance: HALOPERIDOL
     Indication: Bipolar disorder
     Route: 065
  6. HALDOL [Suspect]
     Active Substance: HALOPERIDOL
     Indication: Schizoaffective disorder
  7. HALDOL [Suspect]
     Active Substance: HALOPERIDOL
     Indication: Anxiety disorder
  8. HALDOL [Suspect]
     Active Substance: HALOPERIDOL
     Indication: Obsessive-compulsive disorder
  9. LITHIUM [Suspect]
     Active Substance: LITHIUM
     Indication: Bipolar disorder
     Route: 065
  10. LITHIUM [Suspect]
     Active Substance: LITHIUM
     Indication: Schizoaffective disorder
  11. LITHIUM [Suspect]
     Active Substance: LITHIUM
     Indication: Anxiety disorder
  12. LITHIUM [Suspect]
     Active Substance: LITHIUM
     Indication: Obsessive-compulsive disorder

REACTIONS (17)
  - Alopecia [Recovering/Resolving]
  - Fatigue [Unknown]
  - Hypertension [Unknown]
  - Drooling [Unknown]
  - Anhedonia [Unknown]
  - Akathisia [Unknown]
  - Somnolence [Unknown]
  - Dizziness [Unknown]
  - Obsessive-compulsive disorder [Unknown]
  - Memory impairment [Recovering/Resolving]
  - Weight increased [Unknown]
  - Muscle spasms [Recovering/Resolving]
  - Feeling abnormal [Recovering/Resolving]
  - Uterine leiomyoma [Unknown]
  - Loss of personal independence in daily activities [Unknown]
  - Obesity [Unknown]
  - Adverse drug reaction [Unknown]

NARRATIVE: CASE EVENT DATE: 20220101
